FAERS Safety Report 21531226 (Version 5)
Quarter: 2023Q1

REPORT INFORMATION
  Report Type: Report from Study
  Country: MX (occurrence: MX)
  Receive Date: 20221031
  Receipt Date: 20230113
  Transmission Date: 20230418
  Serious: Yes (Life-Threatening, Other)
  Sender: FDA-Public Use
  Company Number: MX-BRISTOL-MYERS SQUIBB COMPANY-2022-129102

PATIENT
  Age: 39 Year
  Sex: Female
  Weight: 86 kg

DRUGS (5)
  1. PACLITAXEL [Suspect]
     Active Substance: PACLITAXEL
     Indication: Breast cancer
     Dosage: PRIOR TO EVENT ONSET, MOST RECENT DOSE ON 12-JAN-2022.
     Route: 042
     Dates: start: 20211028, end: 20220112
  2. DOXORUBICIN HYDROCHLORIDE [Suspect]
     Active Substance: DOXORUBICIN HYDROCHLORIDE
     Indication: Breast cancer
     Dosage: PRIOR TO EVENT ONSET, MOST RECENT DOSE OF 102 MG ON 24-MAR-2022.
     Route: 042
     Dates: start: 20220119, end: 20220324
  3. CYCLOPHOSPHAMIDE [Suspect]
     Active Substance: CYCLOPHOSPHAMIDE
     Indication: Breast cancer
     Dosage: PRIOR TO EVENT ONSET, MOST RECENT DOSE OF 1020 MG ON 24-MAR-2022.
     Route: 042
     Dates: start: 20220119, end: 20220324
  4. TAMOXIFEN [Suspect]
     Active Substance: TAMOXIFEN
     Indication: Breast cancer
     Dosage: PRIOR TO EVENT ONSET, MOST RECENT DOSE ON 25-OCT-2022.?MOST RECENT DOSE ON 22-NOV-2022.
     Route: 048
     Dates: start: 20220609
  5. BISOPROLOL [Concomitant]
     Active Substance: BISOPROLOL
     Indication: Product used for unknown indication
     Route: 048
     Dates: start: 20220419

REACTIONS (1)
  - Anaphylactic reaction [Recovered/Resolved]

NARRATIVE: CASE EVENT DATE: 20221026
